FAERS Safety Report 8555609-0 (Version None)
Quarter: 2012Q3

REPORT INFORMATION
  Report Type: 
  Country: None (occurrence: None)
  Receive Date: 20120731
  Receipt Date: 20111026
  Transmission Date: 20120928
  Serious: No
  Sender: FDA-Public Use
  Company Number: US-ASTRAZENECA-2010SE53644

PATIENT
  Age: 68 Year
  Sex: Female

DRUGS (3)
  1. SEROQUEL [Suspect]
     Indication: TINNITUS
     Route: 048
  2. CLONAZEPAM [Concomitant]
  3. SEROQUEL [Suspect]
     Route: 048

REACTIONS (16)
  - SLEEP DISORDER DUE TO GENERAL MEDICAL CONDITION, INSOMNIA TYPE [None]
  - NERVOUSNESS [None]
  - FIBROMYALGIA [None]
  - OFF LABEL USE [None]
  - DRUG DOSE OMISSION [None]
  - PANIC ATTACK [None]
  - TREMOR [None]
  - ABASIA [None]
  - PAIN IN EXTREMITY [None]
  - TENSION [None]
  - THERAPEUTIC RESPONSE UNEXPECTED [None]
  - ANXIETY [None]
  - NERVOUS SYSTEM DISORDER [None]
  - TINNITUS [None]
  - DEPRESSION [None]
  - PAIN [None]
